FAERS Safety Report 21768635 (Version 2)
Quarter: 2023Q1

REPORT INFORMATION
  Report Type: Report from Study
  Country: CA (occurrence: CA)
  Receive Date: 20221222
  Receipt Date: 20230103
  Transmission Date: 20230417
  Serious: Yes (Other)
  Sender: FDA-Public Use
  Company Number: CA-HLS-202202304

PATIENT
  Age: 34 Year
  Sex: Male

DRUGS (1)
  1. CLOZARIL [Suspect]
     Active Substance: CLOZAPINE
     Indication: Product used for unknown indication
     Dosage: 12.5 MG TWICE A DAY AND WAS GRADUALLY TITRATED UP IN INCREMENTS OF 25 MG UNTIL HE REACHED 125 MG IN
     Route: 048
     Dates: start: 20221205, end: 20221217

REACTIONS (7)
  - Chest discomfort [Unknown]
  - Myocarditis [Unknown]
  - C-reactive protein increased [Unknown]
  - Malaise [Unknown]
  - Tachycardia [Unknown]
  - Body temperature increased [Recovered/Resolved]
  - Troponin increased [Recovered/Resolved]

NARRATIVE: CASE EVENT DATE: 20221213
